FAERS Safety Report 17687957 (Version 1)
Quarter: 2020Q2

REPORT INFORMATION
  Report Type: Report from Study
  Country: US (occurrence: US)
  Receive Date: 20200421
  Receipt Date: 20200421
  Transmission Date: 20200714
  Serious: Yes (Death)
  Sender: FDA-Public Use
  Company Number: US-ASTRAZENECA-2020SE52924

PATIENT
  Age: 20761 Day
  Sex: Female

DRUGS (4)
  1. TAGRISSO [Suspect]
     Active Substance: OSIMERTINIB
     Indication: LUNG CARCINOMA CELL TYPE UNSPECIFIED STAGE 0
     Route: 048
     Dates: start: 20180726
  2. TAGRISSO [Suspect]
     Active Substance: OSIMERTINIB
     Indication: CHOLANGIOCARCINOMA
     Route: 048
     Dates: start: 20180726
  3. TAGRISSO [Suspect]
     Active Substance: OSIMERTINIB
     Indication: BRAIN NEOPLASM MALIGNANT
     Route: 048
     Dates: start: 20180726
  4. TAGRISSO [Suspect]
     Active Substance: OSIMERTINIB
     Indication: METASTASES TO LIVER
     Route: 048
     Dates: start: 20180726

REACTIONS (1)
  - Death [Fatal]

NARRATIVE: CASE EVENT DATE: 20200331
